FAERS Safety Report 7390523-8 (Version None)
Quarter: 2011Q2

REPORT INFORMATION
  Report Type: 
  Country: None (occurrence: None)
  Receive Date: 20110402
  Receipt Date: 20110325
  Transmission Date: 20111010
  Serious: Yes (Other)
  Sender: FDA-Public Use
  Company Number: US-US-EMD SERONO, INC.-7050352

PATIENT
  Sex: Male

DRUGS (1)
  1. REBIF [Suspect]
     Indication: MULTIPLE SCLEROSIS
     Route: 058
     Dates: start: 20040521

REACTIONS (8)
  - GLAUCOMA [None]
  - ACCIDENT AT WORK [None]
  - INFECTION [None]
  - CLAVICLE FRACTURE [None]
  - CATARACT [None]
  - RIB FRACTURE [None]
  - BLOOD GLUCOSE ABNORMAL [None]
  - ROTATOR CUFF SYNDROME [None]
